FAERS Safety Report 12565999 (Version 1)
Quarter: 2016Q3

REPORT INFORMATION
  Report Type: Spontaneous
  Country: US (occurrence: US)
  Receive Date: 20160718
  Receipt Date: 20160718
  Transmission Date: 20161109
  Serious: No
  Sender: FDA-Public Use
  Company Number: US-BIOGEN-2016BI00264663

PATIENT
  Age: 37 Year
  Sex: Female

DRUGS (2)
  1. TECFIDERA [Suspect]
     Active Substance: DIMETHYL FUMARATE
     Indication: MULTIPLE SCLEROSIS
     Route: 065
     Dates: end: 201511
  2. AMPYRA [Concomitant]
     Active Substance: DALFAMPRIDINE
     Indication: PRODUCT USED FOR UNKNOWN INDICATION
     Route: 065

REACTIONS (8)
  - Urinary incontinence [Unknown]
  - Flushing [Not Recovered/Not Resolved]
  - Anal incontinence [Unknown]
  - Memory impairment [Unknown]
  - Cognitive disorder [Unknown]
  - Asthenia [Unknown]
  - Balance disorder [Unknown]
  - Abdominal discomfort [Not Recovered/Not Resolved]

NARRATIVE: CASE EVENT DATE: 201510
